FAERS Safety Report 9467903 (Version 2)
Quarter: 2013Q3

REPORT INFORMATION
  Report Type: Spontaneous
  Country: LK (occurrence: LK)
  Receive Date: 20130821
  Receipt Date: 20130904
  Transmission Date: 20140515
  Serious: Yes (Hospitalization)
  Sender: FDA-Public Use
  Company Number: LK-BAYER-2013-099600

PATIENT
  Age: 22 Year
  Sex: Male

DRUGS (1)
  1. MAGNEVIST [Suspect]
     Indication: PITUITARY CYST
     Dosage: 10 ML, ONCE
     Dates: start: 20130813, end: 20130813

REACTIONS (2)
  - Eye swelling [Recovered/Resolved]
  - Dyspnoea [None]
